FAERS Safety Report 18417649 (Version 1)
Quarter: 2020Q4

REPORT INFORMATION
  Report Type: Spontaneous
  Country: US (occurrence: US)
  Receive Date: 20201022
  Receipt Date: 20201022
  Transmission Date: 20210114
  Serious: No
  Sender: FDA-Public Use
  Company Number: 2020SGN02521

PATIENT
  Sex: Female

DRUGS (3)
  1. HERCEPTIN [Concomitant]
     Active Substance: TRASTUZUMAB
     Indication: BREAST CANCER FEMALE
  2. HALAVEN [Suspect]
     Active Substance: ERIBULIN MESYLATE
     Dosage: UNK
     Dates: start: 20200630, end: 20200630
  3. TUKYSA [Suspect]
     Active Substance: TUCATINIB
     Indication: BREAST CANCER FEMALE
     Dosage: UNK, BID

REACTIONS (17)
  - Alopecia [Unknown]
  - Hypertension [Unknown]
  - Glossodynia [Unknown]
  - Constipation [Unknown]
  - Off label use [Unknown]
  - Diarrhoea [Unknown]
  - Irritable bowel syndrome [Unknown]
  - Disease progression [Unknown]
  - Headache [Unknown]
  - Urinary tract infection [Unknown]
  - Erythema [Unknown]
  - Gastrointestinal disorder [Unknown]
  - Fatigue [Unknown]
  - Hepatic enzyme increased [Unknown]
  - Pruritus [Unknown]
  - Malaise [Unknown]
  - Cognitive disorder [Unknown]
